FAERS Safety Report 22141358 (Version 1)
Quarter: 2023Q1

REPORT INFORMATION
  Report Type: Spontaneous
  Country: CN (occurrence: CN)
  Receive Date: 20230327
  Receipt Date: 20230327
  Transmission Date: 20230418
  Serious: Yes (Disabling, Other)
  Sender: FDA-Public Use
  Company Number: CN-PFIZER INC-PV202300054666

PATIENT
  Age: 58 Year
  Sex: Male
  Weight: 74 kg

DRUGS (3)
  1. METHOTREXATE SODIUM [Suspect]
     Active Substance: METHOTREXATE SODIUM
     Indication: Acute lymphocytic leukaemia
     Dosage: 5.5 G, 1X/DAY
     Route: 041
     Dates: start: 20230309, end: 20230309
  2. OLVEREMBATINIB [Concomitant]
     Active Substance: OLVEREMBATINIB
     Indication: Acute lymphocytic leukaemia
     Dosage: 40 MG, ALTERNATE DAY
     Route: 048
     Dates: start: 20230309, end: 20230313
  3. ROXATIDINE ACETATE HYDROCHLORIDE [Concomitant]
     Active Substance: ROXATIDINE ACETATE HYDROCHLORIDE
     Indication: Therapeutic procedure
     Dosage: 75 MG, 2X/DAY
     Route: 041
     Dates: start: 20230309, end: 20230313

REACTIONS (2)
  - Renal impairment [Recovering/Resolving]
  - Drug clearance increased [Unknown]

NARRATIVE: CASE EVENT DATE: 20230309
